FAERS Safety Report 5018149-1 (Version None)
Quarter: 2006Q2

REPORT INFORMATION
  Report Type: 
  Country: None (occurrence: None)
  Receive Date: 20060530
  Receipt Date: 20050216
  Transmission Date: 20061013
  Serious: Yes (Hospitalization)
  Sender: FDA-Public Use
  Company Number: 2005035093

PATIENT
  Age: 82 Year
  Sex: Male

DRUGS (5)
  1. LYRICA [Suspect]
     Indication: NEURALGIA
     Dosage: 300 MG (150 MG, 2 IN 1 D), ORAL
     Route: 048
     Dates: start: 20050110, end: 20050120
  2. CLOPIDOGREL (CLOPIDOGREL) [Concomitant]
  3. FUROSEMIDE [Concomitant]
  4. SIMVASTATIN [Concomitant]
  5. LISINOPRIL [Concomitant]

REACTIONS (2)
  - PSYCHOTIC DISORDER [None]
  - RENAL FAILURE ACUTE [None]
